FAERS Safety Report 23743384 (Version 1)
Quarter: 2024Q2

REPORT INFORMATION
  Report Type: Spontaneous
  Country: US (occurrence: US)
  Receive Date: 20240415
  Receipt Date: 20240415
  Transmission Date: 20240716
  Serious: Yes (Other)
  Sender: FDA-Public Use
  Company Number: US-DRL-USA-LIT/USA/24/0005617

PATIENT
  Age: 58 Year
  Sex: Male

DRUGS (3)
  1. METOPROLOL SUCCINATE [Suspect]
     Active Substance: METOPROLOL SUCCINATE
     Indication: Cardiomyopathy
     Dosage: 200MG DAILY
  2. DILTIAZEM [Suspect]
     Active Substance: DILTIAZEM
     Indication: Cardiomyopathy
     Dosage: 30MG TWICE DAILY
  3. DISOPYRAMIDE [Suspect]
     Active Substance: DISOPYRAMIDE
     Indication: Cardiomyopathy
     Dosage: 100MG DAILY

REACTIONS (3)
  - Drug ineffective [Unknown]
  - Bradycardia [Unknown]
  - Diarrhoea [Unknown]
